FAERS Safety Report 9784594 (Version 1)
Quarter: 2013Q4

REPORT INFORMATION
  Report Type: Spontaneous
  Country: GB (occurrence: GB)
  Receive Date: 20131226
  Receipt Date: 20131226
  Transmission Date: 20140711
  Serious: Yes (Disabling)
  Sender: FDA-Public Use
  Company Number: GB-WATSON-2013-23296

PATIENT
  Sex: Female

DRUGS (5)
  1. ATENOLOL (UNKNOWN) [Suspect]
     Indication: PRODUCT USED FOR UNKNOWN INDICATION
     Dosage: 50 MG, DAILY; PATIENT HAS BEEN TAKIN ATENOLOL FOR OVER 20 YEARS (FROM APPROX 1993)
     Route: 048
  2. SERTRALINE (UNKNOWN) [Suspect]
     Indication: PRODUCT USED FOR UNKNOWN INDICATION
     Dosage: 100 MG, DAILY; PATEINT HAS BEEN TAKING FOR THE PAST 2 YEARS (FROM APPROX 2011)
     Route: 048
  3. LOSARTAN [Concomitant]
     Indication: PRODUCT USED FOR UNKNOWN INDICATION
     Dosage: 100 MG, DAILY; UNSURE ABOUT START DATE
     Route: 048
  4. OMEPRAZOLE [Concomitant]
     Indication: PRODUCT USED FOR UNKNOWN INDICATION
     Dosage: 10 MG, DAILY; PATIENT HAS BEEN TAKING FOR THE PAST 2 YEARS (APPROX 2011)
     Route: 048
  5. BENDROFLUMETHIAZIDE [Concomitant]
     Indication: PRODUCT USED FOR UNKNOWN INDICATION
     Dosage: 2.5 MG, DAILY; PATIENT HAS BEEN TAKING FOR THE PAST 10 YEARS (FROM APPROX 2003)
     Route: 048

REACTIONS (2)
  - Coordination abnormal [Not Recovered/Not Resolved]
  - Condition aggravated [Not Recovered/Not Resolved]
